FAERS Safety Report 23929152 (Version 2)
Quarter: 2024Q2

REPORT INFORMATION
  Report Type: Spontaneous
  Country: US (occurrence: US)
  Receive Date: 20240601
  Receipt Date: 20240605
  Transmission Date: 20240716
  Serious: Yes (Other)
  Sender: FDA-Public Use
  Company Number: US-GLENMARK PHARMACEUTICALS-2024GMK091213

PATIENT

DRUGS (3)
  1. TACROLIMUS [Suspect]
     Active Substance: TACROLIMUS
     Indication: Immunosuppressant drug therapy
     Dosage: UNK
     Route: 065
  2. TACROLIMUS [Suspect]
     Active Substance: TACROLIMUS
     Dosage: UNK (LOWERED TARGET TACROLIMUS LEVEL)
     Route: 065
  3. PREDNISONE [Concomitant]
     Active Substance: PREDNISONE
     Indication: Immunosuppressant drug therapy
     Dosage: UNK
     Route: 065

REACTIONS (8)
  - Focal segmental glomerulosclerosis [Unknown]
  - Diffuse mesangial sclerosis [Unknown]
  - Arteriosclerosis [Unknown]
  - Chronic allograft nephropathy [Unknown]
  - Glomerulonephritis membranous [Unknown]
  - Immunosuppressant drug level increased [Unknown]
  - Renal transplant failure [Unknown]
  - Nephropathy toxic [Unknown]
